FAERS Safety Report 8502765-6 (Version None)
Quarter: 2012Q3

REPORT INFORMATION
  Report Type: 
  Country: None (occurrence: None)
  Receive Date: 20120711
  Receipt Date: 20120707
  Transmission Date: 20120928
  Serious: Yes (Hospitalization, Other)
  Sender: FDA-Public Use
  Company Number: CA-ABBOTT-12P-028-0946086-00

PATIENT
  Sex: Female

DRUGS (2)
  1. HUMIRA [Suspect]
     Indication: CROHN'S DISEASE
     Route: 058
     Dates: start: 20120204
  2. PREDNISONE [Concomitant]
     Indication: PRODUCT USED FOR UNKNOWN INDICATION

REACTIONS (13)
  - DYSSTASIA [None]
  - LIMB ASYMMETRY [None]
  - JOINT SWELLING [None]
  - DIARRHOEA [None]
  - JOINT EFFUSION [None]
  - ABDOMINAL PAIN [None]
  - URINARY TRACT INFECTION [None]
  - CONDITION AGGRAVATED [None]
  - VOMITING [None]
  - PYREXIA [None]
  - INFLAMMATION [None]
  - ARTHRALGIA [None]
  - INSOMNIA [None]
